FAERS Safety Report 22830508 (Version 6)
Quarter: 2024Q1

REPORT INFORMATION
  Report Type: Spontaneous
  Country: US (occurrence: US)
  Receive Date: 20230817
  Receipt Date: 20240105
  Transmission Date: 20240409
  Serious: Yes (Other)
  Sender: FDA-Public Use
  Company Number: US-Blueprint Medicines Corporation-1347

PATIENT
  Age: 58 Year
  Sex: Female

DRUGS (2)
  1. AYVAKIT [Suspect]
     Active Substance: AVAPRITINIB
     Indication: Systemic mastocytosis
     Route: 065
     Dates: start: 20230807
  2. AYVAKIT [Suspect]
     Active Substance: AVAPRITINIB
     Route: 065
     Dates: start: 20230807

REACTIONS (13)
  - Back disorder [Unknown]
  - Brain fog [Unknown]
  - Eye swelling [Unknown]
  - Peripheral swelling [Unknown]
  - Platelet count decreased [Unknown]
  - Pain [Recovering/Resolving]
  - Eosinophil count decreased [Unknown]
  - Vision blurred [Unknown]
  - Alopecia [Unknown]
  - Lacrimation increased [Unknown]
  - Weight increased [Unknown]
  - Bone disorder [Unknown]
  - Intentional product use issue [Unknown]

NARRATIVE: CASE EVENT DATE: 20230809
